FAERS Safety Report 4813478-6 (Version None)
Quarter: 2005Q4

REPORT INFORMATION
  Report Type: 
  Country: None (occurrence: None)
  Receive Date: 20051028
  Receipt Date: 20050215
  Transmission Date: 20060501
  Serious: No
  Sender: FDA-Public Use
  Company Number: A0545775A

PATIENT
  Age: 52 Year
  Sex: Female
  Weight: 63.6 kg

DRUGS (4)
  1. ADVAIR DISKUS 100/50 [Suspect]
     Route: 055
     Dates: start: 20010901
  2. STEROIDS [Concomitant]
     Route: 048
  3. CLIMARA [Concomitant]
  4. LORATADINE [Concomitant]

REACTIONS (2)
  - DIZZINESS [None]
  - NIGHT SWEATS [None]
